FAERS Safety Report 5325253-7 (Version None)
Quarter: 2007Q2

REPORT INFORMATION
  Report Type: 
  Country: None (occurrence: None)
  Receive Date: 20070220
  Receipt Date: 20061219
  Transmission Date: 20071010
  Serious: No
  Sender: FDA-Public Use
  Company Number: WAES 0612USA03181

PATIENT
  Age: 38 Year
  Sex: Female

DRUGS (1)
  1. JANUVIA [Suspect]
     Indication: BLOOD GLUCOSE ABNORMAL
     Dosage: 100 MG/DAILY/PO
     Route: 048
     Dates: start: 20061121

REACTIONS (3)
  - PHARYNGOLARYNGEAL PAIN [None]
  - RHINORRHOEA [None]
  - THROAT IRRITATION [None]
